FAERS Safety Report 8800583 (Version 2)
Quarter: 2012Q4

REPORT INFORMATION
  Report Type: 
  Country: FR (occurrence: FR)
  Receive Date: 20120921
  Receipt Date: 20121009
  Transmission Date: 20130627
  Serious: Yes (Other)
  Sender: FDA-Public Use
  Company Number: PHHY2012FR078755

PATIENT
  Sex: Female

DRUGS (2)
  1. CARBAMAZEPINE [Suspect]
     Dosage: 1 DF, BID
     Route: 048
     Dates: start: 20120216
  2. PENTOXIFYLLINE [Suspect]

REACTIONS (2)
  - Transient ischaemic attack [Recovered/Resolved]
  - Wrong drug administered [Unknown]
